FAERS Safety Report 4473820-5 (Version None)
Quarter: 2004Q4

REPORT INFORMATION
  Report Type: 
  Country: None (occurrence: None)
  Receive Date: 20041008
  Receipt Date: 20041008
  Transmission Date: 20050328
  Serious: Yes (Hospitalization)
  Sender: FDA-Public Use
  Company Number: None

PATIENT
  Age: 8 Year
  Sex: Female
  Weight: 46.5 kg

DRUGS (7)
  1. IMMUNE GLOBULIN INTRAVENOUS (HUMAN) [Suspect]
     Indication: BLOOD IMMUNOGLOBULIN G DECREASED
     Dosage: 23 GM X 1 IV
     Route: 042
     Dates: start: 20041001
  2. MAG OXIDE [Concomitant]
  3. PROGRAF [Concomitant]
  4. ZANTAC [Concomitant]
  5. CELLCEPT [Concomitant]
  6. NORVASC [Concomitant]
  7. DIFLUCAN [Concomitant]

REACTIONS (3)
  - DEEP VEIN THROMBOSIS [None]
  - INFUSION RELATED REACTION [None]
  - PAIN IN EXTREMITY [None]
